FAERS Safety Report 6420284-8 (Version None)
Quarter: 2009Q4

REPORT INFORMATION
  Report Type: 
  Country: None (occurrence: None)
  Receive Date: 20091029
  Receipt Date: 20091020
  Transmission Date: 20100525
  Serious: Yes (Other)
  Sender: FDA-Public Use
  Company Number: FR-BAXTER-2009BH007364

PATIENT
  Age: 9 Year
  Sex: Female
  Weight: 23 kg

DRUGS (8)
  1. ENDOXAN BAXTER [Suspect]
     Indication: EWING'S SARCOMA
     Route: 065
     Dates: start: 20090414
  2. NAVELBINE [Suspect]
     Indication: EWING'S SARCOMA
     Route: 042
     Dates: start: 20090615, end: 20090616
  3. NAVELBINE [Suspect]
     Route: 042
     Dates: start: 20090520, end: 20090520
  4. NAVELBINE [Suspect]
     Route: 042
     Dates: start: 20090513, end: 20090513
  5. NAVELBINE [Suspect]
     Route: 042
     Dates: start: 20090429, end: 20090429
  6. NAVELBINE [Suspect]
     Route: 042
     Dates: start: 20090422, end: 20090422
  7. NAVELBINE [Suspect]
     Route: 042
     Dates: start: 20090414, end: 20090414
  8. RADIOTHERAPY [Suspect]
     Indication: EWING'S SARCOMA
     Route: 065

REACTIONS (1)
  - INFLUENZA [None]
